FAERS Safety Report 4970300-5 (Version None)
Quarter: 2006Q2

REPORT INFORMATION
  Report Type: 
  Country: None (occurrence: None)
  Receive Date: 20060412
  Receipt Date: 20060302
  Transmission Date: 20061013
  Serious: Yes (Other)
  Sender: FDA-Public Use
  Company Number: PHBS2006BR03514

PATIENT
  Age: 22 Year
  Sex: Male

DRUGS (1)
  1. TEGRETOL [Suspect]
     Dosage: 200 MG/DAY
     Route: 048

REACTIONS (19)
  - CHROMATURIA [None]
  - CONFUSIONAL STATE [None]
  - DIZZINESS [None]
  - DRUG INEFFECTIVE [None]
  - DYSURIA [None]
  - GENITAL BURNING SENSATION [None]
  - GENITAL INFECTION MALE [None]
  - HEADACHE [None]
  - INFLAMMATION [None]
  - INSOMNIA [None]
  - ORCHITIS [None]
  - PAIN [None]
  - POLLAKIURIA [None]
  - PREMATURE EJACULATION [None]
  - SOMNOLENCE [None]
  - SYNCOPE [None]
  - TESTICULAR PAIN [None]
  - URETHRAL PAIN [None]
  - URINARY TRACT DISORDER [None]
